FAERS Safety Report 25522780 (Version 4)
Quarter: 2025Q4

REPORT INFORMATION
  Report Type: Spontaneous
  Country: JP (occurrence: JP)
  Receive Date: 20250707
  Receipt Date: 20251014
  Transmission Date: 20260118
  Serious: Yes (Hospitalization, Other)
  Sender: GLAXOSMITHKLINE
  Company Number: JP-GSKJP-JP2025JPN081982AA

PATIENT
  Age: 0 Year
  Sex: Female
  Weight: 2.736 kg

DRUGS (13)
  1. BENLYSTA [Suspect]
     Active Substance: BELIMUMAB
     Indication: Systemic lupus erythematosus
     Dosage: 200 MG, WE
  2. PREDONINE [Suspect]
     Active Substance: PREDNISOLONE
     Indication: Systemic lupus erythematosus
     Dosage: 4 MG, QD
  3. AZATHIOPRINE [Suspect]
     Active Substance: AZATHIOPRINE
     Indication: Systemic lupus erythematosus
     Dosage: 50 MG, QD
  4. PLAQUENIL [Suspect]
     Active Substance: HYDROXYCHLOROQUINE SULFATE
     Indication: Systemic lupus erythematosus
     Dosage: 200 MG, QD
  5. ONEALFA [Suspect]
     Active Substance: ALFACALCIDOL
     Indication: Systemic lupus erythematosus
     Dosage: 0.5 ?G, QD
  6. DIETARY SUPPLEMENT\PROBIOTICS [Suspect]
     Active Substance: DIETARY SUPPLEMENT\PROBIOTICS NOS
     Dosage: UNK
  7. MAGNESIUM OXIDE [Suspect]
     Active Substance: MAGNESIUM OXIDE
     Dosage: 1980 MG, QD
  8. SARPOGRELATE [Suspect]
     Active Substance: SARPOGRELATE
     Dosage: 300 MG, QD
  9. VONOPRAZAN FUMARATE [Suspect]
     Active Substance: VONOPRAZAN FUMARATE
     Dosage: 20 MG, QD
  10. PROPIVERINE [Suspect]
     Active Substance: PROPIVERINE
     Dosage: 20 MG, QD
  11. RUPAFIN [Suspect]
     Active Substance: RUPATADINE FUMARATE
     Dosage: 10 MG, QD
  12. CALONAL [Suspect]
     Active Substance: ACETAMINOPHEN
     Indication: Systemic lupus erythematosus
     Dosage: 400 MG, QD
  13. MENATETRENONE [Concomitant]
     Active Substance: MENATETRENONE
     Dosage: 2 MG, QD

REACTIONS (5)
  - Pyrexia [Recovering/Resolving]
  - Tachycardia [Recovering/Resolving]
  - Neonatal infection [Recovered/Resolved]
  - B-lymphocyte count decreased [Recovered/Resolved]
  - Foetal exposure during pregnancy [Unknown]

NARRATIVE: CASE EVENT DATE: 20241123
